FAERS Safety Report 5759363-7 (Version None)
Quarter: 2008Q2

REPORT INFORMATION
  Report Type: 
  Country: None (occurrence: None)
  Receive Date: 20080605
  Receipt Date: 20080526
  Transmission Date: 20081010
  Serious: Yes (Hospitalization)
  Sender: FDA-Public Use
  Company Number: JP-JNJFOC-20080505860

PATIENT
  Age: 6 Decade
  Sex: Male

DRUGS (3)
  1. REMICADE [Suspect]
     Dosage: INFUSIONS 2 - 5
     Route: 042
  2. REMICADE [Suspect]
     Dosage: INFUSIONS 2 - 5
     Route: 042
  3. REMICADE [Suspect]
     Indication: CROHN'S DISEASE
     Route: 042

REACTIONS (1)
  - NEURILEMMOMA [None]
